FAERS Safety Report 13910660 (Version 1)
Quarter: 2017Q3

REPORT INFORMATION
  Report Type: Spontaneous
  Country: JP (occurrence: JP)
  Receive Date: 20170828
  Receipt Date: 20170828
  Transmission Date: 20171127
  Serious: Yes (Death, Hospitalization)
  Sender: FDA-Public Use
  Company Number: JP-BAYER-2016-128844

PATIENT
  Age: 69 Year
  Sex: Male
  Weight: 153.3 kg

DRUGS (19)
  1. NEXAVAR [Suspect]
     Active Substance: SORAFENIB
     Indication: PAPILLARY THYROID CANCER
     Dosage: DAILY DOSE 800 MG
     Route: 048
     Dates: start: 20150908, end: 20151116
  2. RINDERON V [Concomitant]
     Active Substance: BETAMETHASONE VALERATE
     Indication: ECZEMA
     Dosage: UNK
     Dates: start: 20151005, end: 20151117
  3. ONEALFA [Concomitant]
     Active Substance: ALFACALCIDOL
     Indication: PROPHYLAXIS
     Dosage: 1 ?G, QD
     Route: 048
     Dates: end: 20160817
  4. CANDESARTAN. [Concomitant]
     Active Substance: CANDESARTAN
     Indication: HYPERTENSION
     Dosage: 4 MG, QD
     Route: 048
     Dates: start: 20150928, end: 20160817
  5. ADONA [Concomitant]
     Active Substance: CARBAZOCHROME SODIUM SULFONATE
     Indication: MUCOSAL HAEMORRHAGE
     Dosage: 30 MG, QD
     Route: 048
     Dates: start: 20151102, end: 20151117
  6. DUTASTERIDE. [Concomitant]
     Active Substance: DUTASTERIDE
     Dosage: 0.5 MG, QD
     Route: 048
     Dates: end: 20160817
  7. FEBUXOSTAT. [Concomitant]
     Active Substance: FEBUXOSTAT
     Dosage: DAILY DOSE 10 MG
     Route: 048
     Dates: end: 20160817
  8. DERMOVATE [Concomitant]
     Active Substance: CLOBETASOL
     Indication: PALMAR-PLANTAR ERYTHRODYSAESTHESIA SYNDROME
     Dosage: UNK
     Dates: start: 20150928, end: 20151207
  9. PROTECADIN [Concomitant]
     Active Substance: LAFUTIDINE
     Dosage: 20 MG, QD
     Route: 048
     Dates: end: 20160817
  10. HIRUDOID [Concomitant]
     Active Substance: GLYCOSAMINOGLYCANS
     Indication: DRY SKIN PROPHYLAXIS
     Dosage: UNK
     Dates: start: 20150907, end: 20160817
  11. NEXAVAR [Suspect]
     Active Substance: SORAFENIB
     Indication: METASTASES TO BONE
  12. NEXAVAR [Suspect]
     Active Substance: SORAFENIB
     Indication: METASTASES TO SOFT TISSUE
  13. ASPARA-CA [Concomitant]
     Active Substance: CALCIUM ASPARTATE
     Indication: HYPOCALCAEMIA
     Dosage: 400 MG, QD
     Route: 048
     Dates: start: 20151102, end: 20151210
  14. TRANSAMIN [Concomitant]
     Active Substance: TRANEXAMIC ACID
     Indication: MUCOSAL HAEMORRHAGE
     Dosage: 750 MG, QD
     Route: 048
     Dates: start: 20151102, end: 20151117
  15. ONEALFA [Concomitant]
     Active Substance: ALFACALCIDOL
     Indication: PROPHYLAXIS
     Dosage: 0.5 ?G, QD
     Route: 048
  16. KERATINAMIN [Concomitant]
     Active Substance: UREA
     Indication: HYPERKERATOSIS
     Dosage: UNK
     Dates: start: 20151005, end: 20151117
  17. THYRADIN S [Concomitant]
     Active Substance: LEVOTHYROXINE SODIUM
     Indication: SECONDARY HYPOTHYROIDISM
     Dosage: DAILY DOSE 100 ?G
     Route: 048
     Dates: end: 20160817
  18. FLIVAS [Concomitant]
     Active Substance: NAFTOPIDIL
     Dosage: 50 MG, QD
     Route: 048
     Dates: end: 20160817
  19. ALBUMIN TANNATE [Concomitant]
     Active Substance: ALBUMIN BOVINE\TANNIC ACID
     Indication: DIARRHOEA
     Dosage: 3 G, QD
     Route: 048
     Dates: start: 20151102, end: 20151117

REACTIONS (11)
  - Tracheal fistula [Fatal]
  - Skin disorder [Recovered/Resolved]
  - Dyspnoea [Fatal]
  - Tracheal haemorrhage [Fatal]
  - Rash [Recovered/Resolved]
  - Palmar-plantar erythrodysaesthesia syndrome [None]
  - Diarrhoea [Recovered/Resolved]
  - Tracheal disorder [Fatal]
  - Arteriovenous fistula [Fatal]
  - Ejection fraction decreased [Not Recovered/Not Resolved]
  - Cough [Fatal]

NARRATIVE: CASE EVENT DATE: 20150928
